FAERS Safety Report 20416389 (Version 1)
Quarter: 2022Q1

REPORT INFORMATION
  Report Type: Report from Study
  Country: US (occurrence: US)
  Receive Date: 20220202
  Receipt Date: 20220202
  Transmission Date: 20220424
  Serious: Yes (Hospitalization, Other)
  Sender: FDA-Public Use
  Company Number: US-BAYER-2022A014774

PATIENT
  Age: 39 Year
  Sex: Male

DRUGS (2)
  1. STIVARGA [Suspect]
     Active Substance: REGORAFENIB
     Indication: Rectal cancer
     Dosage: 120 MG, QD ON DAYS 1-21 OF 28 DAY CYCLE
     Route: 048
     Dates: start: 20211005
  2. ELIQUIS [Concomitant]
     Active Substance: APIXABAN
     Dosage: UNK

REACTIONS (3)
  - Terminal state [Not Recovered/Not Resolved]
  - Hospitalisation [Recovered/Resolved]
  - Off label use [None]

NARRATIVE: CASE EVENT DATE: 20211005
